FAERS Safety Report 23100783 (Version 1)
Quarter: 2023Q4

REPORT INFORMATION
  Report Type: Spontaneous
  Country: US (occurrence: None)
  Receive Date: 20231021
  Receipt Date: 20231021
  Transmission Date: 20240109
  Serious: Yes (Hospitalization)
  Sender: FDA-Public Use
  Company Number: None

PATIENT
  Sex: Female

DRUGS (6)
  1. PULMOZYME [Suspect]
     Active Substance: DORNASE ALFA
  2. BUDESONIDE SUS [Concomitant]
  3. CALTRATE+D [Concomitant]
  4. CIPROFLOXACIN [Concomitant]
     Active Substance: CIPROFLOXACIN
  5. MAGNESIUM [Concomitant]
     Active Substance: MAGNESIUM
  6. SOD CHL 15 ML=1 NEB [Concomitant]

REACTIONS (1)
  - Pneumonia [None]
